FAERS Safety Report 7617294-1 (Version None)
Quarter: 2011Q3

REPORT INFORMATION
  Report Type: 
  Country: None (occurrence: None)
  Receive Date: 20110718
  Receipt Date: 20110703
  Transmission Date: 20111222
  Serious: Yes (Hospitalization)
  Sender: FDA-Public Use
  Company Number: PHHO2011IL10939

PATIENT
  Sex: Male
  Weight: 74 kg

DRUGS (14)
  1. BLINDED TIOTROPIUM [Suspect]
     Indication: CHRONIC OBSTRUCTIVE PULMONARY DISEASE
     Dosage: DOUBLE BLINDED
     Dates: start: 20110202, end: 20110624
  2. IKAPRESS [Concomitant]
     Indication: HYPERTENSION
     Dosage: 240 G, ONCE/SINGLE
     Route: 048
  3. BLINDED NO TREATMENT RECEIVED [Suspect]
     Dosage: DOUBLE BLINDED
     Dates: start: 20110626
  4. OMEPRADEX [Concomitant]
     Indication: HIATUS HERNIA
     Dosage: 20 G, ONCE/SINGLE
     Route: 048
  5. DIGOXIN [Concomitant]
     Indication: MYOCARDIAL ISCHAEMIA
     Dosage: M0.25 UNK, UNK
     Route: 048
  6. PRYSOLINE [Concomitant]
     Indication: HYPERTENSION
     Dosage: 12.5 G, BID
     Route: 048
  7. BLINDED NVA237 [Suspect]
     Indication: CHRONIC OBSTRUCTIVE PULMONARY DISEASE
     Dosage: DOUBLE BLINDED
     Dates: start: 20110202, end: 20110624
  8. BLINDED QVA149 [Suspect]
     Indication: CHRONIC OBSTRUCTIVE PULMONARY DISEASE
     Dosage: DOUBLE BLINDED
     Dates: start: 20110202, end: 20110624
  9. BLINDED NVA237 [Suspect]
     Dosage: DOUBLE BLINDED
     Dates: start: 20110626
  10. ALDOSPIRONE [Concomitant]
     Indication: MYOCARDIAL ISCHAEMIA
     Dosage: 25 G, ONCE/SINGLE
     Route: 048
     Dates: start: 20110113
  11. COUMADIN [Concomitant]
     Indication: ATRIAL FIBRILLATION
     Dosage: 5 MG, ONCE/SINGLE
     Route: 048
  12. BLINDED NO TREATMENT RECEIVED [Suspect]
     Indication: CHRONIC OBSTRUCTIVE PULMONARY DISEASE
     Dosage: DOUBLE BLINDED
     Dates: start: 20110202, end: 20110624
  13. BLINDED QVA149 [Suspect]
     Dosage: DOUBLE BLINDED
     Dates: start: 20110626
  14. BLINDED TIOTROPIUM [Suspect]
     Dosage: DOUBLE BLINDED
     Dates: start: 20110626

REACTIONS (5)
  - URTICARIA [None]
  - CHRONIC OBSTRUCTIVE PULMONARY DISEASE [None]
  - ABDOMINAL PAIN [None]
  - PLEURAL EFFUSION [None]
  - PNEUMONIA [None]
